FAERS Safety Report 7691448-0 (Version None)
Quarter: 2011Q3

REPORT INFORMATION
  Report Type: 
  Country: None (occurrence: None)
  Receive Date: 20110818
  Receipt Date: 20110812
  Transmission Date: 20111222
  Serious: Yes (Other)
  Sender: FDA-Public Use
  Company Number: PHHY2011ES62087

PATIENT
  Age: 4 Year
  Sex: Female

DRUGS (4)
  1. METHOTREXATE [Concomitant]
     Dosage: UNK UKN, UNK
     Dates: start: 20110501
  2. ILARIS [Suspect]
     Indication: JUVENILE ARTHRITIS
     Dosage: 2 MG/KG, UNK
     Route: 058
     Dates: start: 20110621
  3. CORTICOSTEROID NOS [Concomitant]
     Dosage: UNK UKN, UNK
  4. CORTICOSTEROID NOS [Concomitant]
     Dosage: 2 MG/KG, QD

REACTIONS (3)
  - BLOOD IMMUNOGLOBULIN G INCREASED [None]
  - TRANSAMINASES INCREASED [None]
  - SMOOTH MUSCLE ANTIBODY POSITIVE [None]
